FAERS Safety Report 9347475 (Version 1)
Quarter: 2013Q2

REPORT INFORMATION
  Report Type: Spontaneous
  Country: US (occurrence: US)
  Receive Date: 20130614
  Receipt Date: 20130614
  Transmission Date: 20140414
  Serious: Yes (Hospitalization, Other)
  Sender: FDA-Public Use
  Company Number: US-AMGEN-USASP2013041305

PATIENT
  Age: 28 Year
  Sex: Female

DRUGS (2)
  1. ENBREL [Suspect]
     Indication: RHEUMATOID ARTHRITIS
     Dosage: 50 MG, QWK
     Route: 065
     Dates: start: 2009
  2. METHOTREXATE [Concomitant]
     Dosage: UNK UNK, 8 PILLS WEEKLY

REACTIONS (6)
  - Hepatic infection [Recovered/Resolved]
  - Cholecystitis infective [Recovered/Resolved]
  - Splenic infection [Recovered/Resolved]
  - Increased tendency to bruise [Not Recovered/Not Resolved]
  - Contusion [Not Recovered/Not Resolved]
  - Pneumonia [Recovered/Resolved]
